FAERS Safety Report 12843757 (Version 2)
Quarter: 2016Q4

REPORT INFORMATION
  Report Type: Spontaneous
  Country: US (occurrence: US)
  Receive Date: 20161013
  Receipt Date: 20161019
  Transmission Date: 20170207
  Serious: No
  Sender: FDA-Public Use
  Company Number: US-HORIZON-RAV-0206-2016

PATIENT
  Age: 29 Year
  Sex: Female

DRUGS (3)
  1. RAVICTI [Suspect]
     Active Substance: GLYCEROL PHENYLBUTYRATE
     Indication: ORNITHINE TRANSCARBAMOYLASE DEFICIENCY
     Dosage: 5 ML BID
     Dates: start: 20140901
  2. CITRULLINE [Concomitant]
     Active Substance: CITRULLINE
     Dosage: 17 ML BID
  3. PROTEIN [Concomitant]
     Active Substance: PROTEIN
     Dosage: 20 G

REACTIONS (5)
  - Vitamin D decreased [Unknown]
  - Nasal congestion [Unknown]
  - Haemoglobin decreased [Unknown]
  - Fatigue [Unknown]
  - Sneezing [Unknown]

NARRATIVE: CASE EVENT DATE: 201609
